FAERS Safety Report 7704987-0 (Version None)
Quarter: 2011Q3

REPORT INFORMATION
  Report Type: 
  Country: None (occurrence: None)
  Receive Date: 20110823
  Receipt Date: 20110811
  Transmission Date: 20111222
  Serious: Yes (Hospitalization, Other)
  Sender: FDA-Public Use
  Company Number: US-ELI_LILLY_AND_COMPANY-US201108004307

PATIENT
  Sex: Female

DRUGS (8)
  1. METHOTREXATE [Concomitant]
  2. VITAMIN D [Concomitant]
  3. SENNA [Concomitant]
  4. PLAQUENIL [Concomitant]
  5. CALCIUM CARBONATE [Concomitant]
  6. FORTEO [Suspect]
     Indication: OSTEOPOROSIS
     Dosage: 20 UG, QD
  7. NEXIUM [Concomitant]
  8. FERROUS SULFATE TAB [Concomitant]

REACTIONS (12)
  - BLOOD COUNT ABNORMAL [None]
  - DECREASED APPETITE [None]
  - BLOOD POTASSIUM DECREASED [None]
  - VOMITING [None]
  - BLOOD MAGNESIUM ABNORMAL [None]
  - EATING DISORDER [None]
  - FATIGUE [None]
  - ASTHENIA [None]
  - WEIGHT DECREASED [None]
  - BLOOD ELECTROLYTES ABNORMAL [None]
  - NAUSEA [None]
  - MALAISE [None]
